FAERS Safety Report 4302891-1 (Version None)
Quarter: 2004Q1

REPORT INFORMATION
  Report Type: 
  Country: None (occurrence: None)
  Receive Date: 20040220
  Receipt Date: 20040204
  Transmission Date: 20041129
  Serious: Yes (Hospitalization)
  Sender: FDA-Public Use
  Company Number: 2004-DE-00560GD

PATIENT
  Age: 73 Year
  Sex: Male

DRUGS (3)
  1. METHOTREXATE [Suspect]
     Indication: RHEUMATOID ARTHRITIS
     Dosage: 20 MG SC EACH WEEK, SC
     Route: 058
  2. PREDNISONE [Suspect]
     Indication: RHEUMATOID ARTHRITIS
     Dosage: 3 MG
  3. INFLIXIMAB (INFLIXIMAB) [Suspect]
     Indication: RHEUMATOID ARTHRITIS
     Dosage: 200 MG, IV

REACTIONS (11)
  - ABDOMINAL TENDERNESS [None]
  - BETA HAEMOLYTIC STREPTOCOCCAL INFECTION [None]
  - BOWEL SOUNDS ABNORMAL [None]
  - CHILLS [None]
  - DIARRHOEA [None]
  - FATIGUE [None]
  - HYPOPHOSPHATAEMIA [None]
  - HYPOVOLAEMIA [None]
  - MENINGITIS LISTERIA [None]
  - SOMNOLENCE [None]
  - SPEECH DISORDER [None]
